FAERS Safety Report 5270978-5 (Version None)
Quarter: 2007Q1

REPORT INFORMATION
  Report Type: 
  Country: None (occurrence: None)
  Receive Date: 20070321
  Receipt Date: 20070306
  Transmission Date: 20070707
  Serious: Yes (Hospitalization)
  Sender: FDA-Public Use
  Company Number: US-AMGEN-STX213954

PATIENT
  Sex: Female

DRUGS (3)
  1. ENBREL [Suspect]
     Indication: RHEUMATOID ARTHRITIS
     Route: 058
     Dates: start: 20050101
  2. IMURAN [Concomitant]
     Route: 065
     Dates: start: 20050101
  3. PLAQUENIL [Concomitant]
     Route: 065
     Dates: start: 20050101

REACTIONS (3)
  - HEADACHE [None]
  - INTERVERTEBRAL DISC DEGENERATION [None]
  - SINUSITIS [None]
